FAERS Safety Report 4788261-0 (Version None)
Quarter: 2005Q4

REPORT INFORMATION
  Report Type: 
  Country: None (occurrence: None)
  Receive Date: 20051003
  Receipt Date: 20050926
  Transmission Date: 20060501
  Serious: Yes (Life-Threatening)
  Sender: FDA-Public Use
  Company Number: 2005-132697-NL

PATIENT
  Age: 33 Year
  Sex: Female

DRUGS (3)
  1. VECURONIUM BROMIDE [Suspect]
     Indication: GENERAL ANAESTHESIA
     Dosage: INTRAVENOUS (NOS)
     Route: 042
  2. SUXAMETHONIUM CHLORIDE [Suspect]
     Indication: GENERAL ANAESTHESIA
     Dosage: INTRAVENOUS (NOS)
     Route: 042
  3. THIOPENTAL SODIUM [Concomitant]

REACTIONS (2)
  - ANAPHYLACTIC SHOCK [None]
  - DRUG EXPOSURE DURING PREGNANCY [None]
